FAERS Safety Report 7432476-X (Version None)
Quarter: 2011Q2

REPORT INFORMATION
  Report Type: 
  Country: None (occurrence: None)
  Receive Date: 20110422
  Receipt Date: 20110407
  Transmission Date: 20111010
  Serious: Yes (Death, Hospitalization, Other)
  Sender: FDA-Public Use
  Company Number: US-CELGENEUS-163-21880-10122594

PATIENT
  Sex: Female
  Weight: 65.83 kg

DRUGS (23)
  1. CYMBALTA [Concomitant]
     Indication: BONE PAIN
     Dosage: 30 MILLIGRAM
     Route: 048
     Dates: start: 20100701
  2. ADVAIR DISKUS 100/50 [Concomitant]
     Dosage: 250MCG-50MCG, 1 PUFF
     Route: 055
  3. XALATAN [Concomitant]
     Dosage: 1 DROPS
     Route: 047
  4. SINGULAIR [Concomitant]
     Dosage: 10 MILLIGRAM
     Route: 048
  5. MORPHINE SULFATE [Concomitant]
     Dosage: 15 MILLIGRAM
     Route: 048
  6. CORTAVITE WITH LUTEIN [Concomitant]
     Dosage: 1 TABLET
     Route: 048
  7. POTASSIUM CHLORIDE [Concomitant]
     Dosage: 20 MILLIEQUIVALENTS
     Route: 048
  8. REVLIMID [Suspect]
     Indication: MULTIPLE MYELOMA
     Dosage: 25 MILLIGRAM
     Route: 048
     Dates: start: 20100301
  9. BUMETANIDE [Concomitant]
     Dosage: 1 MILLIGRAM
     Route: 048
  10. CALCIUM PLUS VITAMIN D [Concomitant]
     Dosage: 600-400
     Route: 048
  11. DAPSONE [Concomitant]
     Dosage: 100 MILLIGRAM
     Route: 048
  12. LISINOPRIL [Concomitant]
     Dosage: 5 MILLIGRAM
     Route: 048
  13. SENOKOT [Concomitant]
     Dosage: 3 TABLET
     Route: 048
  14. ATIVAN [Concomitant]
     Dosage: .5 MILLIGRAM
     Route: 048
  15. DULCOLAX [Concomitant]
     Dosage: 5 MILLIGRAM
     Route: 048
  16. REVLIMID [Suspect]
     Dosage: 10 MILLIGRAM
     Route: 048
     Dates: start: 20100301, end: 20100801
  17. ZOMETA [Concomitant]
     Route: 065
  18. VITAMIN D [Concomitant]
     Dosage: 800 IU (INTERNATIONAL UNIT)
     Route: 048
  19. PRILOSEC [Concomitant]
     Dosage: 20 MILLIGRAM
     Route: 048
  20. OXYGEN [Concomitant]
     Route: 045
  21. DECADRON [Concomitant]
     Dosage: 40 MILLIGRAM
     Route: 048
     Dates: start: 20100301
  22. ARANESP [Concomitant]
     Route: 065
  23. MS CONTIN [Concomitant]
     Dosage: 15 MILLIGRAM
     Route: 048

REACTIONS (7)
  - SALMONELLA BACTERAEMIA [None]
  - MULTIPLE MYELOMA [None]
  - PYREXIA [None]
  - PANCYTOPENIA [None]
  - CERVICAL VERTEBRAL FRACTURE [None]
  - RESPIRATORY FAILURE [None]
  - ENTEROCOLITIS [None]
